FAERS Safety Report 11118721 (Version 2)
Quarter: 2018Q1

REPORT INFORMATION
  Report Type: Spontaneous
  Country: CA (occurrence: CA)
  Receive Date: 20150518
  Receipt Date: 20180109
  Transmission Date: 20180508
  Serious: Yes (Death, Hospitalization, Other)
  Sender: FDA-Public Use
  Company Number: CA-PFIZER INC-2015161521

PATIENT
  Age: 14 Year
  Sex: Female

DRUGS (14)
  1. DEXRAZOXANE. [Suspect]
     Active Substance: DEXRAZOXANE
     Indication: ACUTE LYMPHOCYTIC LEUKAEMIA
     Dosage: UNK
     Dates: start: 2012
  2. METHYLPREDNISOLONE. [Suspect]
     Active Substance: METHYLPREDNISOLONE
     Indication: ACUTE LYMPHOCYTIC LEUKAEMIA
     Dosage: FOR THE FIRST THREE DAY
     Dates: start: 2012
  3. VINCRISTINE SULFATE. [Suspect]
     Active Substance: VINCRISTINE SULFATE
     Indication: ACUTE LYMPHOCYTIC LEUKAEMIA
     Dosage: UNK
     Dates: start: 2012
  4. PREDNISONE. [Suspect]
     Active Substance: PREDNISONE
     Indication: ACUTE LYMPHOCYTIC LEUKAEMIA
     Dosage: UNK
     Dates: start: 2012
  5. DOXORUBICIN HCL [Suspect]
     Active Substance: DOXORUBICIN HYDROCHLORIDE
     Indication: B PRECURSOR TYPE ACUTE LEUKAEMIA
  6. METHOTREXATE SODIUM. [Suspect]
     Active Substance: METHOTREXATE SODIUM
     Indication: B PRECURSOR TYPE ACUTE LEUKAEMIA
     Dosage: UNK
     Dates: start: 2012
  7. METHYLPREDNISOLONE. [Suspect]
     Active Substance: METHYLPREDNISOLONE
     Indication: B PRECURSOR TYPE ACUTE LEUKAEMIA
  8. CYTARABINE. [Suspect]
     Active Substance: CYTARABINE
     Indication: B PRECURSOR TYPE ACUTE LEUKAEMIA
     Dosage: UNK, SINGLE
     Route: 037
     Dates: start: 2012
  9. VINCRISTINE SULFATE. [Suspect]
     Active Substance: VINCRISTINE SULFATE
     Indication: B PRECURSOR TYPE ACUTE LEUKAEMIA
  10. PEG/L-ASPARAGINASE [Suspect]
     Active Substance: PEGASPARGASE
     Indication: ACUTE LYMPHOCYTIC LEUKAEMIA
     Dosage: UNK
     Dates: start: 2012
  11. PREDNISONE. [Suspect]
     Active Substance: PREDNISONE
     Indication: B PRECURSOR TYPE ACUTE LEUKAEMIA
  12. DOXORUBICIN HCL [Suspect]
     Active Substance: DOXORUBICIN HYDROCHLORIDE
     Indication: ACUTE LYMPHOCYTIC LEUKAEMIA
     Dosage: UNK
     Dates: start: 2012
  13. DEXRAZOXANE. [Suspect]
     Active Substance: DEXRAZOXANE
     Indication: B PRECURSOR TYPE ACUTE LEUKAEMIA
  14. PEG/L-ASPARAGINASE [Suspect]
     Active Substance: PEGASPARGASE
     Indication: B PRECURSOR TYPE ACUTE LEUKAEMIA

REACTIONS (1)
  - Pyomyositis [Recovered/Resolved]

NARRATIVE: CASE EVENT DATE: 2012
